FAERS Safety Report 12578100 (Version 1)
Quarter: 2016Q3

REPORT INFORMATION
  Report Type: Spontaneous
  Country: US (occurrence: None)
  Receive Date: 20160720
  Receipt Date: 20160720
  Transmission Date: 20161109
  Serious: No
  Sender: FDA-Public Use
  Company Number: None

PATIENT
  Age: 62 Year
  Sex: Female
  Weight: 63.5 kg

DRUGS (18)
  1. EQUATE GENERIC BENEDRYL [Concomitant]
  2. TUMS [Concomitant]
     Active Substance: CALCIUM CARBONATE
  3. HYDROCODONE BITARTRATE ACETAMINO, 10 MG AUROBINDO [Suspect]
     Active Substance: ACETAMINOPHEN\HYDROCODONE BITARTRATE
     Indication: INTERVERTEBRAL DISC DEGENERATION
     Route: 048
     Dates: start: 20130515, end: 20160718
  4. OXYGEN. [Concomitant]
     Active Substance: OXYGEN
  5. BENAZAPRIL [Concomitant]
  6. LEVOTHYROXIN [Concomitant]
     Active Substance: LEVOTHYROXINE
  7. BACLOFEN. [Concomitant]
     Active Substance: BACLOFEN
  8. HYDROCODONE BITARTRATE ACETAMINO, 10 MG AUROBINDO [Suspect]
     Active Substance: ACETAMINOPHEN\HYDROCODONE BITARTRATE
     Indication: SPINAL COLUMN STENOSIS
     Route: 048
     Dates: start: 20130515, end: 20160718
  9. AMITIZA [Concomitant]
     Active Substance: LUBIPROSTONE
  10. EQUATE NASAL ORIGINAL [Concomitant]
     Active Substance: OXYMETAZOLINE HYDROCHLORIDE
  11. ACETAMINOPHEN\HYDROCODONE BITARTRATE [Concomitant]
     Active Substance: ACETAMINOPHEN\HYDROCODONE BITARTRATE
  12. HYDROCODONE BITARTRATE ACETAMINO, 10 MG AUROBINDO [Suspect]
     Active Substance: ACETAMINOPHEN\HYDROCODONE BITARTRATE
     Indication: SPONDYLOLISTHESIS
     Route: 048
     Dates: start: 20130515, end: 20160718
  13. ROLLATOR [Concomitant]
  14. AREDS 2 [Concomitant]
     Active Substance: MINERALS\VITAMINS
  15. CENTRUM WOMEN [Concomitant]
     Active Substance: VITAMINS
  16. LORAZAPAM [Concomitant]
     Active Substance: LORAZEPAM
  17. AMLODIPINE BESYLATE. [Concomitant]
     Active Substance: AMLODIPINE BESYLATE
  18. VITAMIN B12 [Concomitant]
     Active Substance: CYANOCOBALAMIN

REACTIONS (3)
  - Product substitution issue [None]
  - Drug effect decreased [None]
  - Poor quality sleep [None]

NARRATIVE: CASE EVENT DATE: 20160510
